FAERS Safety Report 25698378 (Version 1)
Quarter: 2025Q3

REPORT INFORMATION
  Report Type: Spontaneous
  Country: GB (occurrence: GB)
  Receive Date: 20250819
  Receipt Date: 20250819
  Transmission Date: 20251021
  Serious: Yes (Other)
  Sender: AUROBINDO
  Company Number: GB-MHRA-MED-202508060035282830-ZVHLS

PATIENT
  Age: 23 Year
  Sex: Female
  Weight: 59 kg

DRUGS (4)
  1. DULOXETINE [Suspect]
     Active Substance: DULOXETINE
     Indication: Anxiety
     Route: 065
     Dates: start: 20250519, end: 20250803
  2. HYDROCORTISONE [Concomitant]
     Active Substance: HYDROCORTISONE
     Indication: Adverse drug reaction
     Route: 065
     Dates: start: 20250520, end: 20250801
  3. LORATADINE [Concomitant]
     Active Substance: LORATADINE
     Indication: Adverse drug reaction
     Route: 065
  4. CETIRIZINE [Concomitant]
     Active Substance: CETIRIZINE HYDROCHLORIDE
     Indication: Adverse drug reaction
     Route: 065

REACTIONS (4)
  - Eczema [Recovering/Resolving]
  - Eye pruritus [Recovering/Resolving]
  - Throat irritation [Recovering/Resolving]
  - Urticaria [Recovered/Resolved]

NARRATIVE: CASE EVENT DATE: 20250520
